FAERS Safety Report 8100215-5 (Version None)
Quarter: 2012Q1

REPORT INFORMATION
  Report Type: 
  Country: None (occurrence: None)
  Receive Date: 20120131
  Receipt Date: 20120126
  Transmission Date: 20120608
  Serious: Yes (Other)
  Sender: FDA-Public Use
  Company Number: US-PFIZER INC-2011065056

PATIENT
  Sex: Female
  Weight: 63.039 kg

DRUGS (7)
  1. LYRICA [Suspect]
     Dosage: 100MG DAILY
  2. MILNACIPRAN HYDROCHLORIDE [Concomitant]
     Indication: OSTEOARTHRITIS
     Dosage: UNK
  3. LYRICA [Suspect]
     Indication: FIBROMYALGIA
     Dosage: 100 MG, 2X/DAY
     Route: 048
     Dates: start: 20090101
  4. ESTRACE [Concomitant]
     Dosage: UNK, DAILY
  5. FOSAMAX [Concomitant]
     Dosage: UNK
  6. CEFACLOR [Concomitant]
     Indication: ASTHMA
     Dosage: UNK
  7. ADVAIR DISKUS 100/50 [Concomitant]
     Indication: ASTHMA
     Dosage: UNK

REACTIONS (4)
  - HERPES ZOSTER [None]
  - AMNESIA [None]
  - MUSCLE SPASMS [None]
  - APHASIA [None]
